FAERS Safety Report 11264051 (Version 1)
Quarter: 2015Q3

REPORT INFORMATION
  Report Type: Spontaneous
  Country: US (occurrence: None)
  Receive Date: 20150709
  Receipt Date: 20150709
  Transmission Date: 20151125
  Serious: Yes (Hospitalization, Other)
  Sender: FDA-Public Use
  Company Number: ADR-2015-01228

PATIENT
  Age: 52 Year
  Sex: Female

DRUGS (26)
  1. CYMBALTA [Suspect]
     Active Substance: DULOXETINE HYDROCHLORIDE
  2. LEXAPRO [Suspect]
     Active Substance: ESCITALOPRAM OXALATE
  3. PROTOPIC [Suspect]
     Active Substance: TACROLIMUS
  4. KLOR-CON [Suspect]
     Active Substance: POTASSIUM CHLORIDE
  5. MUCINEX [Suspect]
     Active Substance: GUAIFENESIN
  6. ZANAFLEX [Suspect]
     Active Substance: TIZANIDINE HYDROCHLORIDE
  7. XANAX [Suspect]
     Active Substance: ALPRAZOLAM
  8. TAZORAC [Suspect]
     Active Substance: TAZAROTENE
  9. NIZORAL [Suspect]
     Active Substance: KETOCONAZOLE
  10. CRANBERRY VITAMIN C [Suspect]
     Active Substance: ASCORBIC ACID\CRANBERRY
  11. LASIX [Suspect]
     Active Substance: FUROSEMIDE
  12. TYSABRI [Suspect]
     Active Substance: NATALIZUMAB
  13. KEPPRA [Suspect]
     Active Substance: LEVETIRACETAM
  14. SOLIFENACIN [Suspect]
     Active Substance: SOLIFENACIN
  15. VITAMIN B12 [Suspect]
     Active Substance: CYANOCOBALAMIN
  16. AMBIEN [Suspect]
     Active Substance: ZOLPIDEM TARTRATE
  17. LOPROX [Suspect]
     Active Substance: CICLOPIROX\CICLOPIROX OLAMINE
  18. LIORESAL [Suspect]
     Active Substance: BACLOFEN
  19. CLEOCIN T [Suspect]
     Active Substance: CLINDAMYCIN PHOSPHATE
  20. TYLENOL [Suspect]
     Active Substance: ACETAMINOPHEN
  21. BONIVA [Suspect]
     Active Substance: IBANDRONATE SODIUM
  22. SYNTHROID [Suspect]
     Active Substance: LEVOTHYROXINE SODIUM
  23. MIRALAX [Suspect]
     Active Substance: POLYETHYLENE GLYCOL 3350
  24. NORVASC [Suspect]
     Active Substance: AMLODIPINE BESYLATE
  25. BACLOFEN INTRATHECAL [Suspect]
     Active Substance: BACLOFEN
     Indication: MUSCLE SPASTICITY
  26. VITAMIN C [Suspect]
     Active Substance: ASCORBIC ACID

REACTIONS (16)
  - Pneumonia [None]
  - Fatigue [None]
  - Balance disorder [None]
  - Nuclear magnetic resonance imaging brain abnormal [None]
  - Gait disturbance [None]
  - Coordination abnormal [None]
  - Intestinal obstruction [None]
  - Hypoaesthesia [None]
  - Paraesthesia [None]
  - Neurological symptom [None]
  - Fall [None]
  - Muscular weakness [None]
  - Autoinflammatory disease [None]
  - Urinary tract infection [None]
  - Neurogenic bladder [None]
  - Inflammation [None]
